FAERS Safety Report 10309934 (Version 1)
Quarter: 2014Q3

REPORT INFORMATION
  Report Type: Spontaneous
  Country: US (occurrence: None)
  Receive Date: 20140715
  Receipt Date: 20140715
  Transmission Date: 20150326
  Serious: Yes (Life-Threatening, Hospitalization, Disabling)
  Sender: FDA-Public Use
  Company Number: None

PATIENT
  Age: 70 Year
  Sex: Female
  Weight: 102.06 kg

DRUGS (20)
  1. FLORINEF ACETATE [Concomitant]
     Active Substance: FLUDROCORTISONE ACETATE
  2. HC [Concomitant]
  3. FLONASE [Concomitant]
     Active Substance: FLUTICASONE PROPIONATE
  4. AMBIEN [Concomitant]
     Active Substance: ZOLPIDEM TARTRATE
  5. ALPRAZOLAM. [Concomitant]
     Active Substance: ALPRAZOLAM
  6. PRAVASTATIN [Suspect]
     Active Substance: PRAVASTATIN\PRAVASTATIN SODIUM
     Indication: BLOOD TRIGLYCERIDES INCREASED
     Dosage: AT BEDTIME, BY MOUTH
     Dates: start: 20140331, end: 20140415
  7. NORFLEX [Concomitant]
     Active Substance: ORPHENADRINE CITRATE
  8. SYMBICORT [Concomitant]
     Active Substance: BUDESONIDE\FORMOTEROL FUMARATE DIHYDRATE
  9. CALCIUM [Concomitant]
     Active Substance: CALCIUM
  10. VITAMIN B COMPLEX [Concomitant]
     Active Substance: CYANOCOBALAMIN\DEXPANTHENOL\NIACINAMIDE\PYRIDOXINE HYDROCHLORIDE\RIBOFLAVIN 5^-PHOSPHATE SODIUM\THIAMINE HYDROCHLORIDE\VITAMIN B COMPLEX
  11. LYRICA [Concomitant]
     Active Substance: PREGABALIN
  12. MULTIVITAMIN [Concomitant]
     Active Substance: VITAMINS
  13. CORTEF [Concomitant]
     Active Substance: HYDROCORTISONE
  14. SYNTHROID [Concomitant]
     Active Substance: LEVOTHYROXINE SODIUM
  15. MEDIFINOL [Concomitant]
  16. OXYCODONE [Concomitant]
     Active Substance: OXYCODONE
  17. GROWTH HORMONE [Concomitant]
     Active Substance: SOMATROPIN
  18. CPAP [Concomitant]
     Active Substance: DEVICE
  19. VITAMIN D [Concomitant]
     Active Substance: CHOLECALCIFEROL
  20. VITAMIN E [Concomitant]
     Active Substance: .ALPHA.-TOCOPHEROL

REACTIONS (6)
  - Movement disorder [None]
  - Dysstasia [None]
  - Pain [None]
  - Adrenal insufficiency [None]
  - Dehydration [None]
  - Muscle disorder [None]

NARRATIVE: CASE EVENT DATE: 20140406
